FAERS Safety Report 7338681-5 (Version None)
Quarter: 2011Q1

REPORT INFORMATION
  Report Type: 
  Country: None (occurrence: None)
  Receive Date: 20110308
  Receipt Date: 20110301
  Transmission Date: 20110831
  Serious: Yes (Hospitalization)
  Sender: FDA-Public Use
  Company Number: A0894805A

PATIENT
  Age: 60 Year
  Sex: Female

DRUGS (5)
  1. XANAX [Concomitant]
  2. LISINOPRIL [Concomitant]
  3. POTASSIUM CHLORIDE [Concomitant]
  4. ZETIA [Concomitant]
  5. AVANDIA [Suspect]
     Dosage: 8MG PER DAY
     Route: 048
     Dates: start: 20020914, end: 20080918

REACTIONS (6)
  - MYOCARDIAL INFARCTION [None]
  - CARDIAC FAILURE CONGESTIVE [None]
  - HEADACHE [None]
  - DEPRESSION [None]
  - AMNESIA [None]
  - INSOMNIA [None]
